FAERS Safety Report 9353484 (Version 2)
Quarter: 2013Q2

REPORT INFORMATION
  Report Type: Spontaneous
  Country: FI (occurrence: FI)
  Receive Date: 20130618
  Receipt Date: 20130626
  Transmission Date: 20140414
  Serious: Yes (Death, Hospitalization, Other)
  Sender: FDA-Public Use
  Company Number: FI-JNJFOC-20130603662

PATIENT
  Sex: 0

DRUGS (8)
  1. INFLIXIMAB, RECOMBINANT [Suspect]
     Indication: RHEUMATOID ARTHRITIS
     Dosage: RECEIVED INFUSIONS AT WEEK 4, 6, 10, 18 AND 26
     Route: 042
  2. METHOTREXATE [Suspect]
     Indication: RHEUMATOID ARTHRITIS
     Dosage: INCREASED TO 25MG/WEEK BY WEEK 14
     Route: 065
  3. SULFASALAZINE [Suspect]
     Indication: RHEUMATOID ARTHRITIS
     Dosage: INCREASED TO 2G/DAY BY 2 WEEKS OR MAXIMUM TOLERATED DOSE (1-2G/DAY).
     Route: 065
  4. HYDROXYCHLOROQUINE [Suspect]
     Indication: RHEUMATOID ARTHRITIS
     Route: 065
  5. PREDNISOLONE [Suspect]
     Indication: RHEUMATOID ARTHRITIS
     Route: 065
  6. FOLIC ACID [Concomitant]
     Route: 065
  7. CALCIUM [Concomitant]
     Route: 065
  8. VITAMIN D3 [Concomitant]
     Route: 065

REACTIONS (4)
  - Coronary artery disease [Fatal]
  - Arthritis bacterial [Unknown]
  - Atypical mycobacterial infection [Unknown]
  - Pneumonitis chemical [Unknown]
